FAERS Safety Report 14895677 (Version 1)
Quarter: 2018Q2

REPORT INFORMATION
  Report Type: Spontaneous
  Country: US (occurrence: US)
  Receive Date: 20180515
  Receipt Date: 20180515
  Transmission Date: 20180711
  Serious: No
  Sender: FDA-Public Use
  Company Number: US-FERRINGPH-2017FE05378

PATIENT
  Sex: Female

DRUGS (2)
  1. PITOCIN [Concomitant]
     Active Substance: OXYTOCIN
     Indication: PRODUCT USED FOR UNKNOWN INDICATION
     Route: 065
  2. CERVIDIL [Suspect]
     Active Substance: DINOPROSTONE
     Indication: PRODUCT USED FOR UNKNOWN INDICATION
     Dosage: UNK
     Route: 065
     Dates: start: 201710

REACTIONS (3)
  - Intercepted drug administration error [Unknown]
  - Drug ineffective [Unknown]
  - Drug administration error [Unknown]

NARRATIVE: CASE EVENT DATE: 201710
